FAERS Safety Report 13657519 (Version 2)
Quarter: 2017Q2

REPORT INFORMATION
  Report Type: Spontaneous
  Country: CN (occurrence: CN)
  Receive Date: 20170615
  Receipt Date: 20170621
  Transmission Date: 20170830
  Serious: No
  Sender: FDA-Public Use
  Company Number: CN-GILEAD-2017-0278407

PATIENT
  Sex: Female

DRUGS (1)
  1. VIREAD [Suspect]
     Active Substance: TENOFOVIR DISOPROXIL FUMARATE
     Indication: CHRONIC HEPATITIS B
     Route: 048

REACTIONS (3)
  - Blood lactate dehydrogenase increased [Unknown]
  - Myalgia [Unknown]
  - Blood creatine phosphokinase increased [Unknown]
